FAERS Safety Report 5877732-1 (Version None)
Quarter: 2008Q3

REPORT INFORMATION
  Report Type: 
  Country: None (occurrence: None)
  Receive Date: 20080911
  Receipt Date: 20080905
  Transmission Date: 20090109
  Serious: Yes (Other)
  Sender: FDA-Public Use
  Company Number: US-AMGEN-KDL300462

PATIENT
  Sex: Male

DRUGS (7)
  1. NEUPOGEN [Suspect]
     Indication: CHEMOTHERAPY
     Dates: start: 20080301
  2. MAGNESIUM OXIDE [Concomitant]
  3. POTASSIUM CHLORIDE [Concomitant]
  4. POTASSIUM PHOSPHATES [Concomitant]
  5. NEURONTIN [Concomitant]
  6. FLUCONAZOLE [Concomitant]
  7. PERCOCET [Concomitant]

REACTIONS (2)
  - NEUTROPHIL COUNT DECREASED [None]
  - THERAPEUTIC RESPONSE DECREASED [None]
